FAERS Safety Report 15573910 (Version 2)
Quarter: 2020Q4

REPORT INFORMATION
  Report Type: Spontaneous
  Country: US (occurrence: US)
  Receive Date: 20181101
  Receipt Date: 20201030
  Transmission Date: 20210113
  Serious: Yes (Disabling)
  Sender: FDA-Public Use
  Company Number: US-TEVA-2018-US-971104

PATIENT
  Age: 58 Year
  Sex: Female

DRUGS (16)
  1. DOCETAXEL (WINTHROP) [Suspect]
     Active Substance: DOCETAXEL
     Indication: BREAST CANCER
     Dosage: DOSAGE: 10MG/ML, NUMBER OF CYCLES:04, EVERY WEEK
     Route: 065
     Dates: start: 20111104, end: 20120106
  2. LEVOTHYROXINE. [Concomitant]
     Active Substance: LEVOTHYROXINE
     Dosage: EVERY DAY
  3. FERROUS SULFATE. [Concomitant]
     Active Substance: FERROUS SULFATE
     Dosage: 325MF ONE TAB EVERY DAY
  4. VITAMIN B6 [Concomitant]
     Active Substance: PYRIDOXINE HYDROCHLORIDE
     Dosage: 50MG ONE EVERY DAY
  5. ACETAMINOPHEN. [Concomitant]
     Active Substance: ACETAMINOPHEN
     Dosage: 325MG TWO TABS BY MOUTH EVERY DAY PRN
  6. NEOSAR [Concomitant]
     Active Substance: CYCLOPHOSPHAMIDE
  7. ARIMIDEX [Concomitant]
     Active Substance: ANASTROZOLE
     Dosage: EVERYDAY
  8. ZOFRAN ODT [Concomitant]
     Active Substance: ONDANSETRON HYDROCHLORIDE
     Dosage: ORAL DISINTEGRATED TABLET 8MG Q6H PRN
  9. NAPROXEN. [Concomitant]
     Active Substance: NAPROXEN
     Route: 048
     Dates: start: 20100721
  10. FELODIPINE. [Concomitant]
     Active Substance: FELODIPINE
     Dosage: 2.5MG, DAILY
     Dates: start: 20101006
  11. PHENERGAN [Concomitant]
     Active Substance: PROMETHAZINE HYDROCHLORIDE
     Dosage: 25MG PO Q6H PRN
     Dates: end: 2018
  12. SIMVASTATIN. [Concomitant]
     Active Substance: SIMVASTATIN
     Route: 048
     Dates: start: 20101006
  13. IBUPROFEN. [Concomitant]
     Active Substance: IBUPROFEN
     Route: 048
     Dates: start: 20100907
  14. TRASTUZUMAB. [Concomitant]
     Active Substance: TRASTUZUMAB
     Dosage: 21 MG ING IV OVER 30MIN
  15. CALCIUM CARBONATENITAMIN D3 [Concomitant]
     Dosage: 600MG-400
     Route: 048
     Dates: start: 20100809
  16. CALCIUM CAR/VIT DE [Concomitant]
     Dosage: FREQUENCY: 600MG/400IU ONE TWICE A DAY

REACTIONS (6)
  - Alopecia [Not Recovered/Not Resolved]
  - Hair texture abnormal [Not Recovered/Not Resolved]
  - Madarosis [Not Recovered/Not Resolved]
  - Hair colour changes [Not Recovered/Not Resolved]
  - Depression [Unknown]
  - Anxiety [Unknown]

NARRATIVE: CASE EVENT DATE: 201111
